FAERS Safety Report 15738244 (Version 7)
Quarter: 2020Q2

REPORT INFORMATION
  Report Type: Spontaneous
  Country: US (occurrence: US)
  Receive Date: 20181219
  Receipt Date: 20200602
  Transmission Date: 20200713
  Serious: Yes (Other)
  Sender: FDA-Public Use
  Company Number: PHEH2018US053688

PATIENT
  Sex: Female
  Weight: 52.16 kg

DRUGS (3)
  1. ZOFRAN [Suspect]
     Active Substance: ONDANSETRON HYDROCHLORIDE
     Indication: PRODUCT USED FOR UNKNOWN INDICATION
     Route: 042
  2. ZOFRAN ODT [Suspect]
     Active Substance: ONDANSETRON HYDROCHLORIDE
     Indication: MORNING SICKNESS
     Dosage: 08 MG, BID, AS NEEDED (PRN)
     Route: 048
     Dates: start: 20060323, end: 20061029
  3. ZOFRAN [Suspect]
     Active Substance: ONDANSETRON HYDROCHLORIDE
     Indication: MORNING SICKNESS
     Dosage: 08 MG
     Route: 048
     Dates: start: 20060407, end: 20060914

REACTIONS (25)
  - Abdominal pain [Unknown]
  - Ovarian cyst [Unknown]
  - Abortion threatened [Unknown]
  - Maternal exposure during pregnancy [Unknown]
  - Cardiovascular disorder [Unknown]
  - Amylase decreased [Unknown]
  - Blood chloride decreased [Unknown]
  - Neutrophil count increased [Unknown]
  - Lymphocyte count decreased [Unknown]
  - Blood calcium decreased [Unknown]
  - Product use in unapproved indication [Unknown]
  - Emotional distress [Unknown]
  - Anhedonia [Unknown]
  - Anxiety [Unknown]
  - Blood sodium decreased [Unknown]
  - Haemoglobin decreased [Unknown]
  - Depression [Unknown]
  - Constipation [Unknown]
  - Haematocrit decreased [Unknown]
  - Injury [Unknown]
  - Pain [Unknown]
  - Pelvic pain [Unknown]
  - Abdominal discomfort [Unknown]
  - Mitral valve disease [Unknown]
  - Vaginal discharge [Unknown]
